FAERS Safety Report 9326172 (Version 1)
Quarter: 2013Q2

REPORT INFORMATION
  Report Type: Report from Study
  Country: CA (occurrence: CA)
  Receive Date: 20130604
  Receipt Date: 20130604
  Transmission Date: 20140414
  Serious: Yes (Hospitalization)
  Sender: FDA-Public Use
  Company Number: CA-ABBOTT-13P-028-1097134-00

PATIENT
  Sex: Female

DRUGS (1)
  1. HUMIRA [Suspect]
     Indication: CROHN^S DISEASE
     Route: 058
     Dates: start: 20111216

REACTIONS (5)
  - Neuralgia [Unknown]
  - Crohn^s disease [Unknown]
  - Arthritis enteropathic [Not Recovered/Not Resolved]
  - Breast cellulitis [Unknown]
  - Fungal infection [Unknown]
